FAERS Safety Report 18851337 (Version 1)
Quarter: 2021Q1

REPORT INFORMATION
  Report Type: Spontaneous
  Country: DE (occurrence: DE)
  Receive Date: 20210205
  Receipt Date: 20210205
  Transmission Date: 20210420
  Serious: Yes (Hospitalization)
  Sender: FDA-Public Use
  Company Number: DE-HIKMA PHARMACEUTICALS USA INC.-DE-H14001-21-53480

PATIENT
  Age: 67 Year
  Sex: Female

DRUGS (2)
  1. FLUOROURACIL. [Suspect]
     Active Substance: FLUOROURACIL
     Indication: PRODUCT USED FOR UNKNOWN INDICATION
     Dosage: 1521 MG, 23102020
     Route: 065
  2. CISPLATIN. [Suspect]
     Active Substance: CISPLATIN
     Indication: PRODUCT USED FOR UNKNOWN INDICATION
     Dosage: 30 MG, 23102020
     Route: 065

REACTIONS (6)
  - Fatigue [Unknown]
  - Nausea [Unknown]
  - Paraesthesia [Unknown]
  - Weight decreased [Unknown]
  - General physical health deterioration [Unknown]
  - Condition aggravated [Unknown]
